FAERS Safety Report 7310652-4 (Version None)
Quarter: 2011Q1

REPORT INFORMATION
  Report Type: 
  Country: None (occurrence: None)
  Receive Date: 20110224
  Receipt Date: 20100722
  Transmission Date: 20110831
  Serious: No
  Sender: FDA-Public Use
  Company Number: US-BRISTOL-MYERS SQUIBB COMPANY-15161417

PATIENT
  Age: 70 Year
  Sex: Female
  Weight: 59 kg

DRUGS (6)
  1. GLUCOPHAGE [Suspect]
     Indication: DIABETES MELLITUS
     Dosage: DURATION:7 TO 8 YRS 1 DOSE ON 21JUN10 AND 22JUN10
  2. CYMBALTA [Concomitant]
  3. GLYBURIDE [Concomitant]
  4. HYZAAR [Concomitant]
  5. LIPITOR [Concomitant]
  6. SYNTHROID [Concomitant]

REACTIONS (2)
  - VOMITING [None]
  - NAUSEA [None]
